FAERS Safety Report 4530887-3 (Version None)
Quarter: 2004Q4

REPORT INFORMATION
  Report Type: 
  Country: None (occurrence: None)
  Receive Date: 20041215
  Receipt Date: 20041210
  Transmission Date: 20050328
  Serious: Yes (Hospitalization, Disabling, Other)
  Sender: FDA-Public Use
  Company Number: 200415734BCC

PATIENT
  Age: 90 Year
  Sex: Female
  Weight: 56.6996 kg

DRUGS (7)
  1. BAYER CHILDRENS ORAGE (ACETYLSALICYLIC ACID) [Suspect]
     Indication: PROPHYLAXIS
     Dosage: 81 MG, QD, ORAL
     Route: 048
     Dates: start: 20020101
  2. ATIVAN [Concomitant]
  3. SPIRONOLACTONE [Concomitant]
  4. LASIX [Concomitant]
  5. NISENTIL [Concomitant]
  6. DILTIAZEM [Concomitant]
  7. TRAVATAN [Concomitant]

REACTIONS (6)
  - CONVULSION [None]
  - DIFFICULTY IN WALKING [None]
  - DISTURBANCE IN ATTENTION [None]
  - HEARING IMPAIRED [None]
  - MEMORY IMPAIRMENT [None]
  - NERVOUSNESS [None]
